FAERS Safety Report 25802297 (Version 1)
Quarter: 2025Q3

REPORT INFORMATION
  Report Type: Spontaneous
  Country: US (occurrence: None)
  Receive Date: 20250912
  Receipt Date: 20250912
  Transmission Date: 20251021
  Serious: Yes (Death)
  Sender: FDA-CTU
  Company Number: None

PATIENT
  Age: 80 Year
  Sex: Male

DRUGS (1)
  1. REPATHA [Suspect]
     Active Substance: EVOLOCUMAB
     Indication: Hyperlipidaemia
     Dosage: 140MG/ML EVERY 2 WEEKS  SUBCUTANEOUS ?
     Route: 058
     Dates: start: 20240312, end: 20250430

REACTIONS (1)
  - Death [None]

NARRATIVE: CASE EVENT DATE: 20250812
